FAERS Safety Report 18434307 (Version 1)
Quarter: 2020Q4

REPORT INFORMATION
  Report Type: Spontaneous
  Country: US (occurrence: US)
  Receive Date: 20201028
  Receipt Date: 20201028
  Transmission Date: 20210114
  Serious: Yes (Hospitalization, Other)
  Sender: FDA-Public Use
  Company Number: US-EMCURE PHARMACEUTICALS LTD-2020-EPL-001609

PATIENT
  Age: 14 Year
  Sex: Female
  Weight: 76 kg

DRUGS (1)
  1. VERAPAMIL HYDROCHLORIDE. [Suspect]
     Active Substance: VERAPAMIL HYDROCHLORIDE
     Dosage: 12 DOSAGE FORM, TOTAL
     Route: 048

REACTIONS (9)
  - Atrioventricular block first degree [Recovered/Resolved]
  - Atrioventricular block second degree [Recovered/Resolved]
  - Sinus bradycardia [Recovered/Resolved]
  - Supraventricular tachycardia [Recovered/Resolved]
  - Intentional overdose [Recovered/Resolved]
  - Electrocardiogram PR prolongation [Recovered/Resolved]
  - Nodal rhythm [Recovered/Resolved]
  - Retrograde p-waves [Recovered/Resolved]
  - Hypotension [Recovered/Resolved]
